FAERS Safety Report 9656934 (Version 3)
Quarter: 2014Q3

REPORT INFORMATION
  Report Type: Spontaneous
  Country: US (occurrence: US)
  Receive Date: 20131030
  Receipt Date: 20140825
  Transmission Date: 20150326
  Serious: Yes (Hospitalization)
  Sender: FDA-Public Use
  Company Number: US-009507513-1310USA012733

PATIENT
  Age: 44 Year
  Sex: Female

DRUGS (1)
  1. NUVARING [Suspect]
     Active Substance: ETHINYL ESTRADIOL\ETONOGESTREL
     Indication: CONTRACEPTION
     Dosage: UNK
     Route: 067
     Dates: start: 200402

REACTIONS (8)
  - Back pain [Unknown]
  - Hypertension [Unknown]
  - Gastrooesophageal reflux disease [Unknown]
  - Deep vein thrombosis [Unknown]
  - Blood culture [Unknown]
  - Knee operation [Unknown]
  - Muscle strain [Unknown]
  - Scoliosis [Unknown]

NARRATIVE: CASE EVENT DATE: 20080102
